FAERS Safety Report 6274241-5 (Version None)
Quarter: 2009Q3

REPORT INFORMATION
  Report Type: 
  Country: None (occurrence: None)
  Receive Date: 20090720
  Receipt Date: 20090715
  Transmission Date: 20100115
  Serious: Yes (Other)
  Sender: FDA-Public Use
  Company Number: US-JNJFOC-20090608700

PATIENT
  Sex: Female
  Weight: 76.2 kg

DRUGS (12)
  1. FENTANYL TRANSDERMAL SYSTEM [Suspect]
     Route: 062
  2. FENTANYL TRANSDERMAL SYSTEM [Suspect]
     Route: 062
  3. FENTANYL TRANSDERMAL SYSTEM [Suspect]
     Indication: BACK PAIN
     Route: 062
  4. NEURONTIN [Concomitant]
     Indication: PAIN IN EXTREMITY
     Dosage: AT BED TIME
     Route: 048
  5. SOMA [Concomitant]
     Indication: MYALGIA
     Dosage: AS NEEDED
     Route: 048
  6. VALIUM [Concomitant]
     Indication: ANXIETY
     Dosage: AS NEEDED
     Route: 048
  7. EASY LAX [Concomitant]
     Indication: ABNORMAL FAECES
     Route: 048
  8. PERCOCET [Concomitant]
     Indication: BREAKTHROUGH PAIN
     Route: 048
  9. XANAX [Concomitant]
     Indication: SLEEP DISORDER THERAPY
     Dosage: AT BED TIME
     Route: 048
  10. PHENERGAN [Concomitant]
     Indication: NAUSEA
     Route: 048
  11. LOTENSIN [Concomitant]
     Indication: HYPERTENSION
     Route: 048
  12. VITAMIN B-12 [Concomitant]
     Route: 060

REACTIONS (11)
  - DIARRHOEA [None]
  - FALL [None]
  - HYPERHIDROSIS [None]
  - HYPERTENSION [None]
  - INCORRECT ROUTE OF DRUG ADMINISTRATION [None]
  - MUSCULAR WEAKNESS [None]
  - NAUSEA [None]
  - TREATMENT NONCOMPLIANCE [None]
  - VITAMIN B12 DECREASED [None]
  - WEIGHT INCREASED [None]
  - WRONG TECHNIQUE IN DRUG USAGE PROCESS [None]
